FAERS Safety Report 4936359-6 (Version None)
Quarter: 2006Q1

REPORT INFORMATION
  Report Type: 
  Country: None (occurrence: None)
  Receive Date: 20060127
  Receipt Date: 20051219
  Transmission Date: 20060701
  Serious: Yes (Other)
  Sender: FDA-Public Use
  Company Number: 2005149471

PATIENT
  Age: 60 Year
  Sex: Female
  Weight: 58.9676 kg

DRUGS (10)
  1. LYRICA [Suspect]
     Indication: FIBROMYALGIA
     Dosage: 300 (150 MG, 2 IN 1 D)
     Dates: start: 20050908
  2. ALLEGRA [Concomitant]
  3. MUCINEX (GUAIFENESIN) [Concomitant]
  4. ESTRADIOL [Concomitant]
  5. SYNTHROID [Concomitant]
  6. ACIPHEX [Concomitant]
  7. LEXAPRO [Concomitant]
  8. WELLBUTRIN [Concomitant]
  9. FLEXERIL [Concomitant]
  10. KLONOPIN [Concomitant]

REACTIONS (8)
  - DEPRESSION [None]
  - EXPRESSIVE LANGUAGE DISORDER [None]
  - FEELING ABNORMAL [None]
  - JOINT SWELLING [None]
  - MENTAL IMPAIRMENT [None]
  - OEDEMA PERIPHERAL [None]
  - PSYCHIATRIC SYMPTOM [None]
  - WEIGHT INCREASED [None]
